FAERS Safety Report 10758115 (Version 1)
Quarter: 2015Q1

REPORT INFORMATION
  Report Type: Spontaneous
  Country: US (occurrence: None)
  Receive Date: 20150202
  Receipt Date: 20150202
  Transmission Date: 20150721
  Serious: Yes (Hospitalization)
  Sender: FDA-Public Use
  Company Number: None

PATIENT
  Age: 87 Year
  Sex: Male
  Weight: 80.1 kg

DRUGS (23)
  1. MEGACE [Concomitant]
     Active Substance: MEGESTROL ACETATE
  2. TRAZODONE [Concomitant]
     Active Substance: TRAZODONE HYDROCHLORIDE
  3. NTG [Concomitant]
     Active Substance: NITROGLYCERIN
  4. DESYREL [Concomitant]
     Active Substance: TRAZODONE HYDROCHLORIDE
  5. MYLANTA [Concomitant]
     Active Substance: ALUMINUM HYDROXIDE\MAGNESIUM HYDROXIDE\SIMETHICONE
  6. IMODIUM [Concomitant]
     Active Substance: LOPERAMIDE HYDROCHLORIDE
  7. XOPENEX [Concomitant]
     Active Substance: LEVALBUTEROL HYDROCHLORIDE
  8. ROBITUSSIN (GUAIFENESIN) [Concomitant]
     Active Substance: GUAIFENESIN
  9. AMARYL [Suspect]
     Active Substance: GLIMEPIRIDE
     Indication: DIABETES MELLITUS
     Dosage: 0.5 MG QAM BEDORE BRKFST PO?CHRONIC
     Route: 048
  10. LOPRESSOR [Concomitant]
     Active Substance: METOPROLOL TARTRATE
  11. APAP [Concomitant]
     Active Substance: ACETAMINOPHEN
  12. ZYPREXA [Concomitant]
     Active Substance: OLANZAPINE
  13. HUMALOG [Suspect]
     Active Substance: INSULIN LISPRO
     Dosage: 5 UNITS SQ BID
     Route: 058
  14. KLOR-CON [Concomitant]
     Active Substance: POTASSIUM CHLORIDE
  15. LASIX [Concomitant]
     Active Substance: FUROSEMIDE
  16. ULTRACET [Concomitant]
     Active Substance: ACETAMINOPHEN\TRAMADOL HYDROCHLORIDE
  17. COLACE [Concomitant]
     Active Substance: DOCUSATE SODIUM
  18. FLONASE [Concomitant]
     Active Substance: FLUTICASONE PROPIONATE
  19. LANTUS [Suspect]
     Active Substance: INSULIN GLARGINE
     Indication: DIABETES MELLITUS
     Dosage: 50 UNITS QPM SQ ?CHRONIC
     Route: 058
  20. ZOFRAN [Concomitant]
     Active Substance: ONDANSETRON HYDROCHLORIDE
  21. PACERONE [Concomitant]
     Active Substance: AMIODARONE HYDROCHLORIDE
  22. ULORIC [Concomitant]
     Active Substance: FEBUXOSTAT
  23. HYDROCORTISONE. [Concomitant]
     Active Substance: HYDROCORTISONE

REACTIONS (5)
  - Acute kidney injury [None]
  - Hypoxia [None]
  - Hypoglycaemia [None]
  - Cardiac failure congestive [None]
  - General physical health deterioration [None]

NARRATIVE: CASE EVENT DATE: 20140917
